FAERS Safety Report 7669061-0 (Version None)
Quarter: 2011Q3

REPORT INFORMATION
  Report Type: 
  Country: None (occurrence: None)
  Receive Date: 20110808
  Receipt Date: 20110729
  Transmission Date: 20111222
  Serious: Yes (Hospitalization, Other)
  Sender: FDA-Public Use
  Company Number: US-BAYER-201034265NA

PATIENT
  Age: 29 Year
  Sex: Female
  Weight: 108.62 kg

DRUGS (2)
  1. YAZ [Suspect]
     Indication: HORMONE LEVEL ABNORMAL
     Dosage: UNK UNK, QD
     Route: 048
     Dates: start: 20090616, end: 20090901
  2. ANAPROX [Concomitant]
     Dosage: UNK
     Dates: start: 20090904

REACTIONS (6)
  - PULMONARY EMBOLISM [None]
  - DYSPNOEA [None]
  - BACK PAIN [None]
  - MOBILITY DECREASED [None]
  - AMNESIA [None]
  - PAIN [None]
